FAERS Safety Report 7876951-2 (Version None)
Quarter: 2011Q4

REPORT INFORMATION
  Report Type: 
  Country: None (occurrence: None)
  Receive Date: 20111031
  Receipt Date: 20111020
  Transmission Date: 20120403
  Serious: Yes (Other)
  Sender: FDA-Public Use
  Company Number: PHHY2011BR93330

PATIENT
  Sex: Female

DRUGS (5)
  1. SIMVASTATIN [Suspect]
     Dosage: ONCE A DAY
  2. GALVUS MET [Suspect]
  3. METFORMIN HCL [Suspect]
     Dosage: THREE TIMES DAILY
  4. EXFORGE [Suspect]
     Dosage: 1 DF, (80/5 MG)
  5. GLYBURIDE [Suspect]
     Indication: BLOOD GLUCOSE
     Dosage: 4 UKN, DAILY

REACTIONS (3)
  - BLOOD PRESSURE INCREASED [None]
  - DIABETES MELLITUS [None]
  - HYPOAESTHESIA [None]
